FAERS Safety Report 8457759-6 (Version None)
Quarter: 2012Q2

REPORT INFORMATION
  Report Type: 
  Country: None (occurrence: None)
  Receive Date: 20120618
  Receipt Date: 20120618
  Transmission Date: 20120825
  Serious: Yes (Hospitalization)
  Sender: FDA-Public Use
  Company Number: None

PATIENT
  Age: 39 Year
  Sex: Male
  Weight: 95.2554 kg

DRUGS (1)
  1. LATUDA [Suspect]
     Indication: BIPOLAR DISORDER

REACTIONS (5)
  - STARING [None]
  - BLOOD PRESSURE INCREASED [None]
  - DYSPNOEA [None]
  - DROOLING [None]
  - BRUXISM [None]
